FAERS Safety Report 4730567-5 (Version None)
Quarter: 2005Q3

REPORT INFORMATION
  Report Type: 
  Country: None (occurrence: None)
  Receive Date: 20050725
  Receipt Date: 20050217
  Transmission Date: 20060218
  Serious: No
  Sender: FDA-Public Use
  Company Number: USA050291143

PATIENT
  Age: 54 Year
  Sex: Male

DRUGS (2)
  1. STRATTERA [Suspect]
     Dosage: 40 MG/2 DAY
     Dates: start: 20050127
  2. DIOVAN [Concomitant]

REACTIONS (4)
  - ANGER [None]
  - DIZZINESS [None]
  - FEELING ABNORMAL [None]
  - MYDRIASIS [None]
